FAERS Safety Report 12188487 (Version 3)
Quarter: 2016Q2

REPORT INFORMATION
  Report Type: Report from Study
  Country: US (occurrence: US)
  Receive Date: 20160317
  Receipt Date: 20160420
  Transmission Date: 20160815
  Serious: Yes (Other)
  Sender: FDA-Public Use
  Company Number: US-ALEXION PHARMACEUTICALS INC-A201601744

PATIENT
  Sex: Male

DRUGS (3)
  1. SOLIRIS [Suspect]
     Active Substance: ECULIZUMAB
     Dosage: 1800 MG, Q2W
     Route: 042
  2. SOLIRIS [Suspect]
     Active Substance: ECULIZUMAB
     Dosage: 1800 MG, Q13DAYS
     Route: 042
  3. SOLIRIS [Suspect]
     Active Substance: ECULIZUMAB
     Indication: PAROXYSMAL NOCTURNAL HAEMOGLOBINURIA
     Dosage: 1500 MG, Q2W
     Route: 042

REACTIONS (12)
  - Platelet count decreased [Unknown]
  - Haemoglobin decreased [Unknown]
  - Fatigue [Unknown]
  - Chromaturia [Unknown]
  - Cough [Unknown]
  - Upper respiratory tract infection [Unknown]
  - Aphasia [Unknown]
  - Incorrect dose administered [Unknown]
  - Haemolysis [Unknown]
  - Multimorbidity [Unknown]
  - Dyspnoea exertional [Not Recovered/Not Resolved]
  - Pulmonary mass [Unknown]
